FAERS Safety Report 9642855 (Version 2)
Quarter: 2013Q4

REPORT INFORMATION
  Report Type: Report from Study
  Country: DE (occurrence: DE)
  Receive Date: 20131024
  Receipt Date: 20131024
  Transmission Date: 20140711
  Serious: Yes (Hospitalization)
  Sender: FDA-Public Use
  Company Number: DE-ASTELLAS-2012EU004227

PATIENT
  Age: 63 Year
  Sex: Male
  Weight: 96.2 kg

DRUGS (6)
  1. TACROLIMUS MR4 CAPSULES [Suspect]
     Indication: RENAL TRANSPLANT
     Dosage: 24 MG, UID/QD
     Route: 048
     Dates: start: 20120420
  2. MYCOPHENOLATE MOFETIL [Suspect]
     Indication: RENAL TRANSPLANT
     Dosage: 1000 MG, BID
     Route: 048
     Dates: start: 20120420
  3. ERTAPENEM [Concomitant]
     Indication: UROSEPSIS
     Dosage: 1000 MG, UID/QD
     Route: 042
     Dates: start: 20120521, end: 20120529
  4. ACETYLCYSTEIN [Concomitant]
     Indication: PROPHYLAXIS
     Dosage: 200 MG, BID
     Route: 048
     Dates: start: 20120523, end: 20120529
  5. FUROSEMID                          /00032601/ [Concomitant]
     Indication: PROPHYLAXIS
     Dosage: 80 MG, TID
     Route: 048
     Dates: start: 20120521
  6. INSULIN GLARGINE [Concomitant]
     Indication: DIABETES MELLITUS
     Dosage: 12 MG, UID/QD
     Route: 058
     Dates: start: 20120521

REACTIONS (1)
  - Transplant failure [Recovered/Resolved]
